FAERS Safety Report 10081222 (Version 1)
Quarter: 2014Q2

REPORT INFORMATION
  Report Type: Spontaneous
  Country: US (occurrence: US)
  Receive Date: 20140416
  Receipt Date: 20140416
  Transmission Date: 20141212
  Serious: No
  Sender: FDA-Public Use
  Company Number: US-PFIZER INC-2014103232

PATIENT
  Sex: Female

DRUGS (2)
  1. EFFEXOR [Suspect]
     Dosage: 150 MG, UNK
  2. EFFEXOR XR [Suspect]
     Dosage: UNK

REACTIONS (5)
  - Chest pain [Unknown]
  - Hyperhidrosis [Unknown]
  - Diarrhoea [Unknown]
  - Dyspepsia [Unknown]
  - Product quality issue [Unknown]
